FAERS Safety Report 5964045-2 (Version None)
Quarter: 2008Q4

REPORT INFORMATION
  Report Type: 
  Country: None (occurrence: None)
  Receive Date: 20081124
  Receipt Date: 20081111
  Transmission Date: 20090506
  Serious: Yes (Hospitalization, Other)
  Sender: FDA-Public Use
  Company Number: US-ELI_LILLY_AND_COMPANY-US200811002483

PATIENT
  Sex: Female

DRUGS (8)
  1. CYMBALTA [Suspect]
     Indication: DEPRESSION
     Dosage: 1 D/F, UNK
     Dates: start: 20030101
  2. NEURONTIN [Concomitant]
  3. CELEBREX [Concomitant]
  4. PAXIL [Concomitant]
  5. LEXAPRO [Concomitant]
  6. AMBIEN [Concomitant]
     Indication: SLEEP DISORDER
  7. PROPOXYPHENE [Concomitant]
  8. OTHER HYPNOTICS AND SEDATIVES [Concomitant]

REACTIONS (4)
  - BLOOD GLUCOSE INCREASED [None]
  - DEPRESSION [None]
  - DIABETES MELLITUS [None]
  - SUICIDE ATTEMPT [None]
